FAERS Safety Report 4328352-1 (Version None)
Quarter: 2004Q1

REPORT INFORMATION
  Report Type: 
  Country: None (occurrence: None)
  Receive Date: 20040331
  Receipt Date: 20040209
  Transmission Date: 20041129
  Serious: Yes (Hospitalization, Other)
  Sender: FDA-Public Use
  Company Number: PHRM2004FR00797

PATIENT
  Age: 29 Year
  Sex: Female

DRUGS (10)
  1. TAREG [Suspect]
     Indication: HYPERTENSION
     Dosage: 40 MG, QD
     Route: 048
     Dates: start: 20030315
  2. TAREG [Suspect]
     Dosage: 80 MG, QD
     Dates: end: 20040114
  3. ZOMIG [Suspect]
     Route: 048
  4. NEORECORMON ^ROCHE^ [Suspect]
     Route: 048
  5. BURINEX [Suspect]
     Route: 048
  6. PROGRAF [Suspect]
  7. ATARAX [Suspect]
  8. ACETAMINOPHEN [Suspect]
  9. SPECIAFOLDINE [Suspect]
     Indication: BLOOD HOMOCYSTEINE INCREASED
  10. AVLOCARDYL [Suspect]

REACTIONS (15)
  - ABORTION INDUCED [None]
  - ANTIBODY TEST POSITIVE [None]
  - BLOOD HOMOCYSTEINE INCREASED [None]
  - COMPLICATIONS OF MATERNAL EXPOSURE TO THERAPEUTIC DRUGS [None]
  - DRUG EXPOSURE DURING PREGNANCY [None]
  - ECHOGRAPHY ABNORMAL [None]
  - FOETAL GROWTH RETARDATION [None]
  - FOETAL MOVEMENTS DECREASED [None]
  - HYPERTENSION [None]
  - OLIGOHYDRAMNIOS [None]
  - PLACENTAL DISORDER [None]
  - PREGNANCY [None]
  - RENAL FAILURE [None]
  - ULTRASOUND ABDOMEN ABNORMAL [None]
  - ULTRASOUND KIDNEY ABNORMAL [None]
